FAERS Safety Report 13423426 (Version 2)
Quarter: 2018Q4

REPORT INFORMATION
  Report Type: Report from Study
  Country: CL (occurrence: CL)
  Receive Date: 20170410
  Receipt Date: 20181105
  Transmission Date: 20190204
  Serious: Yes (Other)
  Sender: FDA-Public Use
  Company Number: CL-BRISTOL-MYERS SQUIBB COMPANY-BMS-2017-029116

PATIENT
  Age: 60 Year
  Sex: Female

DRUGS (1)
  1. ABATACEPT [Suspect]
     Active Substance: ABATACEPT
     Indication: RHEUMATOID ARTHRITIS
     Dosage: 125 MG, QWK
     Route: 058
     Dates: start: 20161230, end: 201809

REACTIONS (5)
  - Drug ineffective [Recovered/Resolved]
  - Tooth infection [Recovering/Resolving]
  - Pain [Recovered/Resolved]
  - Pyrexia [Unknown]
  - Tooth fracture [Unknown]

NARRATIVE: CASE EVENT DATE: 201703
